FAERS Safety Report 17517977 (Version 1)
Quarter: 2020Q1

REPORT INFORMATION
  Report Type: Spontaneous
  Country: FR (occurrence: FR)
  Receive Date: 20200309
  Receipt Date: 20200309
  Transmission Date: 20200409
  Serious: Yes (Hospitalization)
  Sender: FDA-Public Use
  Company Number: FR-TEVA-2020-FR-1196062

PATIENT
  Age: 77 Year
  Sex: Male
  Weight: 76.8 kg

DRUGS (11)
  1. PERMIXON [Concomitant]
     Active Substance: HERBALS\SAW PALMETTO
  2. KARDEGIC [Concomitant]
     Active Substance: ASPIRIN DL-LYSINE
  3. LOVENOX [Concomitant]
     Active Substance: ENOXAPARIN SODIUM
  4. LEVOFLOXACINE [Concomitant]
     Active Substance: LEVOFLOXACIN
  5. ADENURIC [Concomitant]
     Active Substance: FEBUXOSTAT
  6. RILMENIDINE [Concomitant]
     Active Substance: RILMENIDINE
  7. XATRAL [Concomitant]
     Active Substance: ALFUZOSIN
  8. FUCIDINE 250 MG, COMPRIM? PELLICUL? [Suspect]
     Active Substance: FUSIDIC ACID
     Indication: OSTEITIS
     Dosage: 6 DOSAGE FORMS
     Route: 048
     Dates: start: 20200113, end: 20200208
  9. ATORVASTATINE [Concomitant]
     Active Substance: ATORVASTATIN
  10. LERCAPRESS [Concomitant]
  11. METFORMINE [Suspect]
     Active Substance: METFORMIN HYDROCHLORIDE
     Indication: TYPE 2 DIABETES MELLITUS
     Dosage: 1700 MG
     Route: 048
     Dates: end: 20200208

REACTIONS (4)
  - Vomiting [Recovered/Resolved]
  - Hypovolaemic shock [Recovered/Resolved]
  - Diarrhoea [Recovered/Resolved]
  - Acute kidney injury [Recovered/Resolved]

NARRATIVE: CASE EVENT DATE: 202002
